FAERS Safety Report 5507454-8 (Version None)
Quarter: 2007Q4

REPORT INFORMATION
  Report Type: 
  Country: None (occurrence: None)
  Receive Date: 20071106
  Receipt Date: 20071031
  Transmission Date: 20080405
  Serious: Yes (Death)
  Sender: FDA-Public Use
  Company Number: US-BAYER-200715044GDS

PATIENT
  Age: 68 Year
  Sex: Female

DRUGS (1)
  1. APROTININ [Suspect]
     Indication: DRUG USE FOR UNKNOWN INDICATION
     Route: 042

REACTIONS (4)
  - BLOOD CREATINE PHOSPHOKINASE INCREASED [None]
  - HYPERGLYCAEMIA [None]
  - RENAL IMPAIRMENT [None]
  - SHOCK [None]
